FAERS Safety Report 5065403-3 (Version None)
Quarter: 2006Q3

REPORT INFORMATION
  Report Type: 
  Country: None (occurrence: None)
  Receive Date: 20060731
  Receipt Date: 20060724
  Transmission Date: 20061208
  Serious: Yes (Other)
  Sender: FDA-Public Use
  Company Number: US-AVENTIS-200616191US

PATIENT
  Sex: Male

DRUGS (10)
  1. LOVENOX [Suspect]
     Indication: HEART VALVE REPLACEMENT
     Dates: start: 20060723, end: 20060724
  2. LOVENOX [Suspect]
     Dates: start: 20060719, end: 20060723
  3. ASPIRIN [Concomitant]
     Dosage: DOSE: UNK
  4. DIGOXIN [Concomitant]
     Dosage: DOSE: UNK
  5. VASOTEC [Concomitant]
     Dosage: DOSE: UNK
  6. ZOCOR [Concomitant]
     Dosage: DOSE: UNK
  7. SOTALOL HCL [Concomitant]
     Dosage: DOSE: UNK
  8. COUMADIN [Concomitant]
     Dosage: DOSE: UNK
  9. GLIPIZIDE [Concomitant]
     Dosage: DOSE: UNK
  10. ACTOS [Concomitant]

REACTIONS (6)
  - BLOOD CREATININE INCREASED [None]
  - CHROMATURIA [None]
  - CREATININE RENAL CLEARANCE DECREASED [None]
  - EPISTAXIS [None]
  - HAEMATURIA [None]
  - RENAL DISORDER [None]
